FAERS Safety Report 25155484 (Version 2)
Quarter: 2025Q2

REPORT INFORMATION
  Report Type: Spontaneous
  Country: GB (occurrence: GB)
  Receive Date: 20250403
  Receipt Date: 20250422
  Transmission Date: 20250717
  Serious: Yes (Other)
  Sender: PFIZER
  Company Number: None

PATIENT
  Age: 61 Year
  Sex: Female

DRUGS (1)
  1. TRANEXAMIC ACID [Suspect]
     Active Substance: TRANEXAMIC ACID
     Indication: Epistaxis
     Dates: start: 20250327, end: 20250328

REACTIONS (6)
  - Cold sweat [Recovered/Resolved]
  - Cardiac arrest [Unknown]
  - Pallor [Unknown]
  - Illness [Unknown]
  - Hypotension [Unknown]
  - Feeling hot [Unknown]

NARRATIVE: CASE EVENT DATE: 20250301
